FAERS Safety Report 9812305 (Version 1)
Quarter: 2014Q1

REPORT INFORMATION
  Report Type: Report from Study
  Country: US (occurrence: US)
  Receive Date: 20140113
  Receipt Date: 20140113
  Transmission Date: 20141002
  Serious: Yes (Other)
  Sender: FDA-Public Use
  Company Number: US-ROCHE-1329087

PATIENT
  Age: 50 Year
  Sex: Male

DRUGS (11)
  1. LUCENTIS [Suspect]
     Indication: CHOROIDAL NEOVASCULARISATION
     Route: 050
  2. LUCENTIS [Suspect]
     Indication: AGE-RELATED MACULAR DEGENERATION
     Route: 050
     Dates: start: 20110729
  3. LUCENTIS [Suspect]
     Route: 050
     Dates: start: 20120113
  4. LUCENTIS [Suspect]
     Route: 050
     Dates: start: 20120427
  5. LUCENTIS [Suspect]
     Route: 050
     Dates: start: 20120622
  6. LUCENTIS [Suspect]
     Route: 050
     Dates: start: 20120720
  7. LUCENTIS [Suspect]
     Route: 050
     Dates: start: 20121102
  8. LUCENTIS [Suspect]
     Route: 050
     Dates: start: 20130111
  9. AVASTIN [Suspect]
     Indication: CHOROIDAL NEOVASCULARISATION
     Dosage: X2 (TREATMENTS)
     Route: 050
  10. AVASTIN [Suspect]
     Indication: AGE-RELATED MACULAR DEGENERATION
  11. VIGAMOX [Concomitant]
     Dosage: QID X3 DAYS
     Route: 047

REACTIONS (6)
  - Cystoid macular oedema [Unknown]
  - Visual acuity reduced [Unknown]
  - Metamorphopsia [Unknown]
  - Vision blurred [Unknown]
  - Macular fibrosis [Unknown]
  - Off label use [Unknown]
